FAERS Safety Report 7666353-6 (Version None)
Quarter: 2011Q3

REPORT INFORMATION
  Report Type: 
  Country: None (occurrence: None)
  Receive Date: 20110806
  Receipt Date: 20110316
  Transmission Date: 20111222
  Serious: No
  Sender: FDA-Public Use
  Company Number: US-ABBOTT-11P-163-0712695-00

PATIENT
  Sex: Female
  Weight: 76.272 kg

DRUGS (7)
  1. PROZAC [Concomitant]
     Indication: NERVOUS SYSTEM DISORDER
  2. COQ-10 [Concomitant]
     Indication: MEDICAL DIET
  3. NIFEDIPINE [Concomitant]
     Indication: HYPERTENSION
  4. LOSARTAN POTASSIUM [Concomitant]
     Indication: HYPERTENSION
  5. CALCIUM ACETATE [Concomitant]
     Indication: VITAMIN SUPPLEMENTATION
  6. NIASPAN [Suspect]
     Indication: BLOOD CHOLESTEROL INCREASED
     Dates: start: 20101001
  7. VITAMIN D [Concomitant]
     Indication: VITAMIN SUPPLEMENTATION

REACTIONS (3)
  - ALOPECIA [None]
  - FLUSHING [None]
  - PRURITUS [None]
